FAERS Safety Report 22319299 (Version 1)
Quarter: 2023Q2

REPORT INFORMATION
  Report Type: Spontaneous
  Country: FR (occurrence: FR)
  Receive Date: 20230515
  Receipt Date: 20230515
  Transmission Date: 20230721
  Serious: Yes (Hospitalization)
  Sender: FDA-Public Use
  Company Number: FR-TEVA-2023-FR-2886453

PATIENT
  Age: 45 Year
  Sex: Male

DRUGS (5)
  1. DARUNAVIR [Suspect]
     Active Substance: DARUNAVIR
     Indication: HIV infection
     Route: 065
  2. RALTEGRAVIR [Suspect]
     Active Substance: RALTEGRAVIR
     Indication: HIV infection
     Route: 065
  3. AMPHOTERICIN B [Suspect]
     Active Substance: AMPHOTERICIN B
     Indication: Visceral leishmaniasis
     Dosage: LIPOSOMAL , TOTAL DOSE 20 MG/KG, THEN 3-5 MG/KG EVERY 15 DAYS FOR 6 MONTHS
     Route: 042
  4. PENTAMIDINE [Suspect]
     Active Substance: PENTAMIDINE
     Indication: Visceral leishmaniasis
     Route: 042
  5. PENTAMIDINE [Suspect]
     Active Substance: PENTAMIDINE
     Dosage: 7 INFUSIONS AT 200MG
     Route: 041

REACTIONS (1)
  - Visceral leishmaniasis [Recovered/Resolved]
